FAERS Safety Report 7481115-0 (Version None)
Quarter: 2011Q2

REPORT INFORMATION
  Report Type: 
  Country: None (occurrence: None)
  Receive Date: 20110512
  Receipt Date: 20110512
  Transmission Date: 20111010
  Serious: No
  Sender: FDA-Public Use
  Company Number: None

PATIENT
  Sex: Male
  Weight: 77.1115 kg

DRUGS (2)
  1. NORCO [Suspect]
     Indication: ARTHRITIS
     Dosage: 1 AS NEEDED
  2. LISINOPRIL [Suspect]
     Dosage: 1 A DAY

REACTIONS (3)
  - LOSS OF CONSCIOUSNESS [None]
  - FALL [None]
  - PRODUCT QUALITY ISSUE [None]
